FAERS Safety Report 10094947 (Version 1)
Quarter: 2014Q2

REPORT INFORMATION
  Report Type: Report from Study
  Country: US (occurrence: US)
  Receive Date: 20140422
  Receipt Date: 20140422
  Transmission Date: 20141212
  Serious: Yes (Hospitalization, Other)
  Sender: FDA-Public Use
  Company Number: US-BAYER-2014-056275

PATIENT
  Age: 62 Year
  Sex: Female

DRUGS (12)
  1. REGORAFENIB [Suspect]
     Indication: METASTATIC GASTRIC CANCER
     Dosage: UNK
  2. REGORAFENIB [Suspect]
     Indication: METASTASES TO OVARY
  3. REGORAFENIB [Suspect]
     Indication: METASTASES TO PERITONEUM
  4. LEUCOVORIN [Suspect]
     Indication: METASTATIC GASTRIC CANCER
     Dosage: UNK
     Dates: start: 20140326
  5. LEUCOVORIN [Suspect]
     Indication: METASTASES TO OVARY
  6. LEUCOVORIN [Suspect]
     Indication: METASTASES TO PERITONEUM
  7. OXALIPLATIN [Suspect]
     Indication: METASTATIC GASTRIC CANCER
     Dosage: UNK
     Dates: start: 20140326
  8. OXALIPLATIN [Suspect]
     Indication: METASTASES TO OVARY
  9. OXALIPLATIN [Suspect]
     Indication: METASTASES TO PERITONEUM
  10. 5-FU [Suspect]
     Indication: METASTATIC GASTRIC CANCER
     Dosage: UNK
     Dates: start: 20140326
  11. 5-FU [Suspect]
     Indication: METASTASES TO OVARY
  12. 5-FU [Suspect]
     Indication: METASTASES TO PERITONEUM

REACTIONS (7)
  - Deep vein thrombosis [None]
  - Pulmonary embolism [None]
  - Dyspnoea [None]
  - Pyrexia [None]
  - Cough [None]
  - Pleural effusion [None]
  - Rash maculo-papular [None]
